FAERS Safety Report 5795215-4 (Version None)
Quarter: 2008Q2

REPORT INFORMATION
  Report Type: 
  Country: None (occurrence: None)
  Receive Date: 20080630
  Receipt Date: 20080618
  Transmission Date: 20081010
  Serious: Yes (Hospitalization)
  Sender: FDA-Public Use
  Company Number: HK-TYCO HEALTHCARE/MALLINCKRODT-T200801039

PATIENT

DRUGS (6)
  1. IMIPRAMINE PAMOATE [Suspect]
     Indication: DRUG ABUSE
  2. BENZODIAZEPINE DERIVATIVES [Suspect]
     Indication: DRUG ABUSE
  3. ZOPICLONE [Suspect]
     Indication: DRUG USE FOR UNKNOWN INDICATION
  4. OPIOID ANAESTHETICS [Suspect]
     Indication: DRUG ABUSE
  5. PHENYLPROPANOLAMINE [Suspect]
     Indication: DRUG ABUSE
  6. PHENOTHIAZINE DERIVATIVES [Suspect]
     Indication: DRUG ABUSE

REACTIONS (1)
  - STATUS EPILEPTICUS [None]
